FAERS Safety Report 9782394 (Version 1)
Quarter: 2013Q4

REPORT INFORMATION
  Report Type: Spontaneous
  Country: US (occurrence: US)
  Receive Date: 20131226
  Receipt Date: 20131226
  Transmission Date: 20140711
  Serious: No
  Sender: FDA-Public Use
  Company Number: US-009507513-1312USA004958

PATIENT
  Age: 83 Year
  Sex: Female

DRUGS (12)
  1. REMERON SOLTAB [Suspect]
     Indication: DEPRESSION
     Dosage: 15MG ONCE DAILY AT NIGHT
     Route: 048
     Dates: start: 20131203, end: 20131203
  2. REMERON SOLTAB [Suspect]
     Dosage: 1/2 TABLET, ONCE DILY AT NIGHT
     Route: 048
     Dates: start: 20131204, end: 20131204
  3. REMERON SOLTAB [Suspect]
     Dosage: 1/2 TABLET, ONCE DILY AT NIGHT
     Route: 048
     Dates: start: 20131206, end: 20131206
  4. REMERON SOLTAB [Suspect]
     Dosage: 1/2 TABLET, ONCE DILY AT NIGHT
     Route: 048
     Dates: start: 20131208, end: 20131208
  5. PROTONIX [Concomitant]
  6. METOPROLOL [Concomitant]
     Dosage: 12.5 MG, ONCE DAILY
  7. MAGNESIUM (UNSPECIFIED) [Concomitant]
  8. VITAMIN B (UNSPECIFIED) [Concomitant]
  9. MELOXICAM [Concomitant]
  10. SUCRALFATE [Concomitant]
     Dosage: 1 G TWICE A DAY
  11. VITAMINS (UNSPECIFIED) [Concomitant]
  12. ASPIRIN [Concomitant]

REACTIONS (13)
  - Hangover [Unknown]
  - Hangover [Unknown]
  - Hangover [Not Recovered/Not Resolved]
  - Adverse event [Not Recovered/Not Resolved]
  - Depressed mood [Not Recovered/Not Resolved]
  - Depression [Not Recovered/Not Resolved]
  - Malaise [Not Recovered/Not Resolved]
  - Wrong technique in drug usage process [Unknown]
  - Wrong technique in drug usage process [Unknown]
  - Wrong technique in drug usage process [Unknown]
  - Underdose [Unknown]
  - Underdose [Unknown]
  - Underdose [Unknown]
